FAERS Safety Report 14304472 (Version 1)
Quarter: 2017Q4

REPORT INFORMATION
  Report Type: Spontaneous
  Country: JP (occurrence: JP)
  Receive Date: 20171219
  Receipt Date: 20171219
  Transmission Date: 20180321
  Serious: Yes (Life-Threatening, Hospitalization, Other)
  Sender: FDA-Public Use
  Company Number: JP-OTSUKA-005237

PATIENT
  Age: 15 Year
  Sex: Female
  Weight: 51.5 kg

DRUGS (13)
  1. SENNOSIDE A [Concomitant]
     Active Substance: SENNOSIDE A
     Indication: CONSTIPATION
     Dosage: 12 MG, QD
     Route: 048
     Dates: start: 20080730
  2. POLYFUL [Concomitant]
     Active Substance: CALCIUM POLYCARBOPHIL
     Indication: CONSTIPATION
     Dosage: 3 G, BID
     Route: 048
     Dates: start: 20080828
  3. ABILIFY [Suspect]
     Active Substance: ARIPIPRAZOLE
     Dosage: 30 MG, QD
     Route: 048
     Dates: start: 20080826, end: 20081020
  4. MAGNESIUM OXIDE. [Concomitant]
     Active Substance: MAGNESIUM OXIDE
     Indication: CONSTIPATION
     Dosage: 2 G, BID
     Route: 048
     Dates: start: 20080806
  5. ABILIFY [Suspect]
     Active Substance: ARIPIPRAZOLE
     Dosage: 6 MG, BID
     Route: 048
     Dates: start: 20081119, end: 20081126
  6. PHENYTOIN. [Concomitant]
     Active Substance: PHENYTOIN
     Dosage: 120 MG, BID
     Route: 048
     Dates: start: 20080718, end: 20080902
  7. ABILIFY [Suspect]
     Active Substance: ARIPIPRAZOLE
     Indication: SCHIZOPHRENIA
     Dosage: 6 MG, QD
     Route: 048
     Dates: start: 20080718, end: 20080718
  8. ABILIFY [Suspect]
     Active Substance: ARIPIPRAZOLE
     Dosage: 12 MG, BID
     Route: 048
     Dates: start: 20080719, end: 20080825
  9. RIVOTRIL NOR [Concomitant]
     Indication: EPILEPSY
     Dosage: 1.5 MG, QD
     Route: 048
     Dates: start: 20080823, end: 20081029
  10. ABILIFY [Suspect]
     Active Substance: ARIPIPRAZOLE
     Dosage: 12 MG, BID
     Route: 048
     Dates: start: 20081021, end: 20081118
  11. PHENYTOIN. [Concomitant]
     Active Substance: PHENYTOIN
     Dosage: 60 MG, BID
     Route: 048
     Dates: start: 20080903, end: 20080906
  12. DEPAKENE [Concomitant]
     Active Substance: VALPROIC ACID
     Indication: EPILEPSY
     Dosage: 800 MG, QD
     Route: 048
     Dates: start: 20080725
  13. CLONAZEPAM. [Concomitant]
     Active Substance: CLONAZEPAM
     Dosage: TABLET
     Dates: start: 20080823, end: 20081029

REACTIONS (1)
  - Generalised tonic-clonic seizure [Recovered/Resolved]

NARRATIVE: CASE EVENT DATE: 20081013
